FAERS Safety Report 9904135 (Version 1)
Quarter: 2014Q1

REPORT INFORMATION
  Report Type: Spontaneous
  Country: US (occurrence: US)
  Receive Date: 20140218
  Receipt Date: 20140218
  Transmission Date: 20141002
  Serious: No
  Sender: FDA-Public Use
  Company Number: US-BIOGENIDEC-2014BI013297

PATIENT
  Age: 57 Year
  Sex: Female

DRUGS (7)
  1. LEVOXYL [Concomitant]
  2. VALIUM [Concomitant]
  3. VIT D [Concomitant]
  4. TECFIDERA [Suspect]
     Indication: MULTIPLE SCLEROSIS
     Route: 048
  5. AMBIEN [Concomitant]
  6. BACLOFEN [Concomitant]
  7. CITALOPRAM HYDROBROMIDE [Concomitant]

REACTIONS (1)
  - Anxiety [Unknown]
